FAERS Safety Report 23984115 (Version 1)
Quarter: 2024Q2

REPORT INFORMATION
  Report Type: Spontaneous
  Country: ES (occurrence: ES)
  Receive Date: 20240618
  Receipt Date: 20240618
  Transmission Date: 20240715
  Serious: Yes (Life-Threatening, Hospitalization, Other)
  Sender: FDA-Public Use
  Company Number: None

PATIENT
  Age: 76 Year
  Sex: Female

DRUGS (3)
  1. RIFAMPIN [Suspect]
     Active Substance: RIFAMPIN
     Indication: Postoperative wound infection
     Dosage: 300 MG, BID
     Route: 048
     Dates: start: 20231018, end: 20231104
  2. CEFTRIAXONE [Suspect]
     Active Substance: CEFTRIAXONE\CEFTRIAXONE SODIUM
     Indication: Postoperative wound infection
     Dosage: 2 G, QD
     Route: 042
     Dates: start: 20231006, end: 20231030
  3. VANCOMYCIN [Suspect]
     Active Substance: VANCOMYCIN
     Indication: Postoperative wound infection
     Dosage: 1 G, BID
     Route: 042
     Dates: start: 20231005, end: 20231104

REACTIONS (1)
  - Drug reaction with eosinophilia and systemic symptoms [Recovered/Resolved]
